FAERS Safety Report 16829927 (Version 1)
Quarter: 2019Q3

REPORT INFORMATION
  Report Type: Spontaneous
  Country: CA (occurrence: CA)
  Receive Date: 20190919
  Receipt Date: 20190919
  Transmission Date: 20191005
  Serious: Yes (Life-Threatening)
  Sender: FDA-Public Use
  Company Number: CA-TEVA-2019-CA-1110918

PATIENT
  Age: 53 Year
  Sex: Male
  Weight: 124 kg

DRUGS (1)
  1. VALSARTAN. [Suspect]
     Active Substance: VALSARTAN
     Indication: HYPERTENSION
     Dosage: 160 MILLIGRAM DAILY;
     Route: 048

REACTIONS (6)
  - Renal cell carcinoma [Unknown]
  - Myelodysplastic syndrome [Unknown]
  - Myeloproliferative neoplasm [Unknown]
  - Colon cancer [Unknown]
  - Product impurity [Unknown]
  - Acute myeloid leukaemia [Unknown]
